FAERS Safety Report 24759092 (Version 1)
Quarter: 2024Q4

REPORT INFORMATION
  Report Type: Spontaneous
  Country: PL (occurrence: PL)
  Receive Date: 20241220
  Receipt Date: 20241220
  Transmission Date: 20250115
  Serious: Yes (Other)
  Sender: ROCHE
  Company Number: PL-ROCHE-10000161966

PATIENT
  Age: 18 Year
  Sex: Female

DRUGS (6)
  1. ALECENSA [Suspect]
     Active Substance: ALECTINIB HYDROCHLORIDE
     Indication: Inflammatory myofibroblastic tumour
     Route: 065
     Dates: end: 202009
  2. DOXORUBICIN [Concomitant]
     Active Substance: DOXORUBICIN
     Dosage: DAYS 1-4
     Route: 042
  3. DACARBAZINE [Concomitant]
     Active Substance: DACARBAZINE
     Dosage: DAYS 1-4
     Route: 042
  4. tazobactam + piperacillin [Concomitant]
  5. CRIZOTINIB [Concomitant]
     Active Substance: CRIZOTINIB
  6. LORLATINIB [Concomitant]
     Active Substance: LORLATINIB

REACTIONS (1)
  - Disease progression [Unknown]
